FAERS Safety Report 7249682-X (Version None)
Quarter: 2011Q1

REPORT INFORMATION
  Report Type: 
  Country: None (occurrence: None)
  Receive Date: 20110128
  Receipt Date: 20110117
  Transmission Date: 20110831
  Serious: Yes (Other)
  Sender: FDA-Public Use
  Company Number: US-SANOFI-AVENTIS-2011SA003549

PATIENT
  Age: 71 Year
  Sex: Male

DRUGS (4)
  1. VIGAMOX [Concomitant]
     Dosage: ONE DROP IN EYE QID FOR 3 DAYS BEFORE SURGERY AND A WEEK AFTER THEN STOP
  2. PRED FORTE [Concomitant]
     Dosage: ONE DROP IN EYE QID FOR A MONTH
  3. MULTAQ [Suspect]
     Indication: ATRIAL FIBRILLATION
     Route: 048
     Dates: start: 20100101
  4. KETOROLAC [Concomitant]
     Dosage: ONE DROP IN EYE QID FOR ONE MONTH

REACTIONS (5)
  - SYNCOPE [None]
  - ATRIAL FLUTTER [None]
  - ATRIAL FIBRILLATION [None]
  - DIZZINESS [None]
  - CATARACT [None]
